FAERS Safety Report 10068052 (Version 1)
Quarter: 2014Q2

REPORT INFORMATION
  Report Type: Report from Study
  Country: US (occurrence: US)
  Receive Date: 20140409
  Receipt Date: 20140409
  Transmission Date: 20141212
  Serious: Yes (Other)
  Sender: FDA-Public Use
  Company Number: US-ABBVIE-14P-163-1220470-00

PATIENT
  Sex: Female
  Weight: 66.74 kg

DRUGS (5)
  1. LUPRON DEPOT [Suspect]
     Indication: ENDOMETRIOSIS
     Route: 030
     Dates: start: 201211, end: 201310
  2. NORETHINDRONE [Concomitant]
     Indication: ENDOMETRIOSIS
     Dates: start: 201211, end: 201310
  3. CYCLOBENZAPRINE [Concomitant]
     Indication: MUSCLE RELAXANT THERAPY
  4. NAPROXEN [Concomitant]
     Indication: INFLAMMATION
  5. MELOXICAM [Concomitant]
     Indication: PAIN

REACTIONS (6)
  - Adhesion [Recovered/Resolved]
  - Ovarian cyst [Recovered/Resolved]
  - Pain [Recovered/Resolved]
  - Procedural pain [Recovered/Resolved]
  - Pollakiuria [Recovered/Resolved]
  - Back pain [Recovered/Resolved]
